FAERS Safety Report 5383485-6 (Version None)
Quarter: 2007Q3

REPORT INFORMATION
  Report Type: 
  Country: None (occurrence: None)
  Receive Date: 20070710
  Receipt Date: 20070705
  Transmission Date: 20080115
  Serious: Yes (Life-Threatening)
  Sender: FDA-Public Use
  Company Number: ES-SHR-ES-2007-025220

PATIENT
  Age: 77 Year
  Sex: Male

DRUGS (1)
  1. MAGNEVIST [Suspect]
     Indication: NUCLEAR MAGNETIC RESONANCE IMAGING BRAIN
     Dosage: 12 ML, 1 DOSE
     Route: 042
     Dates: start: 20070705, end: 20070705

REACTIONS (3)
  - CYANOSIS [None]
  - MUSCLE CONTRACTURE [None]
  - RESPIRATORY ARREST [None]
